FAERS Safety Report 11800869 (Version 4)
Quarter: 2016Q2

REPORT INFORMATION
  Report Type: Spontaneous
  Country: GB (occurrence: GB)
  Receive Date: 20151204
  Receipt Date: 20160405
  Transmission Date: 20160815
  Serious: Yes (Other)
  Sender: FDA-Public Use
  Company Number: GB-ACCORD-035840

PATIENT
  Age: 52 Year
  Sex: Female

DRUGS (2)
  1. METHOTREXATE [Suspect]
     Active Substance: METHOTREXATE
     Indication: PRODUCT USED FOR UNKNOWN INDICATION
     Dosage: DOSAGE FORM: UNSPECIFIED
     Route: 065
  2. SIMPONI [Suspect]
     Active Substance: GOLIMUMAB
     Indication: ARTHRITIS ENTEROPATHIC
     Dosage: DELAYED FROM 04-JAN-2016 TO 11-JAN-2016, AND THEN RECEIVED ON 11-JAN-2016 AND FINALLY WITHDRAWN.
     Route: 058

REACTIONS (9)
  - Crohn^s disease [Unknown]
  - Neuropathy peripheral [Unknown]
  - Fine motor skill dysfunction [Unknown]
  - Peripheral swelling [Unknown]
  - Blood folate decreased [Unknown]
  - Product use issue [Unknown]
  - Peripheral swelling [Recovering/Resolving]
  - Inappropriate schedule of drug administration [Unknown]
  - Blood test abnormal [Unknown]
